FAERS Safety Report 7743693-3 (Version None)
Quarter: 2011Q3

REPORT INFORMATION
  Report Type: 
  Country: None (occurrence: None)
  Receive Date: 20110912
  Receipt Date: 20110902
  Transmission Date: 20111222
  Serious: Yes (Hospitalization)
  Sender: FDA-Public Use
  Company Number: TH-ELI_LILLY_AND_COMPANY-TH201107003911

PATIENT
  Sex: Male

DRUGS (10)
  1. HUMULIN N [Suspect]
     Indication: TYPE 2 DIABETES MELLITUS
     Dosage: 30 IU, UNK
     Route: 065
  2. PLACEBO [Concomitant]
  3. HMG COA REDUCTASE INHIBITORS [Concomitant]
     Dosage: UNK
  4. BETA BLOCKING AGENTS [Concomitant]
     Dosage: UNK
  5. HUMULIN R [Suspect]
     Indication: TYPE 2 DIABETES MELLITUS
     Dosage: 12 IU, UNK
     Route: 065
  6. SAXAGLIPTIN [Concomitant]
     Indication: TYPE 2 DIABETES MELLITUS
     Dosage: UNK
  7. ALDOSTERONE ANTAGONISTS [Concomitant]
     Dosage: UNK
  8. DIURETICS [Concomitant]
     Dosage: UNK
  9. NITROGLYCERIN [Concomitant]
     Dosage: UNK
  10. ASPIRIN [Concomitant]
     Dosage: UNK

REACTIONS (3)
  - ISCHAEMIC CARDIOMYOPATHY [None]
  - ACUTE MYOCARDIAL INFARCTION [None]
  - HYPOGLYCAEMIA [None]
